FAERS Safety Report 9180017 (Version 2)
Quarter: 2013Q2

REPORT INFORMATION
  Report Type: Spontaneous
  Country: US (occurrence: US)
  Receive Date: 20130321
  Receipt Date: 20130405
  Transmission Date: 20140414
  Serious: Yes (Other)
  Sender: FDA-Public Use
  Company Number: CHPA2013US004797

PATIENT
  Age: 83 Year
  Sex: Female

DRUGS (3)
  1. BUCKLEY^S CHEST CONGESTION [Suspect]
     Indication: SINUSITIS
     Dosage: 2 TSP, QID
     Route: 048
  2. BUCKLEY^S CHEST CONGESTION [Suspect]
     Indication: NASOPHARYNGITIS
  3. BUCKLEY^S CHEST CONGESTION [Suspect]
     Indication: NASAL CONGESTION

REACTIONS (4)
  - Sinusitis [Recovered/Resolved]
  - Off label use [Unknown]
  - Expired drug administered [Unknown]
  - Incorrect drug administration duration [Unknown]
